FAERS Safety Report 20641242 (Version 1)
Quarter: 2022Q1

REPORT INFORMATION
  Report Type: Spontaneous
  Country: PL (occurrence: PL)
  Receive Date: 20220328
  Receipt Date: 20220328
  Transmission Date: 20220423
  Serious: Yes (Other)
  Sender: FDA-Public Use
  Company Number: PL-EGIS-HUN-2022-0206

PATIENT
  Age: 40 Year
  Sex: Female

DRUGS (12)
  1. ATORVASTATIN [Interacting]
     Active Substance: ATORVASTATIN
     Indication: Dyslipidaemia
     Dosage: 20 MILLIGRAM, ONCE A DAY
     Route: 065
  2. FLUCONAZOLE [Interacting]
     Active Substance: FLUCONAZOLE
     Indication: Vaginal discharge
     Dosage: UNK (200 MG/DAY WITH A PREPARATION CONTAINING CRANBERRY EXTRACT)
     Route: 048
  3. FLUCONAZOLE [Interacting]
     Active Substance: FLUCONAZOLE
     Indication: Dysuria
     Dosage: 200 MILLIGRAM, ONCE A DAY
     Route: 065
  4. FLUCONAZOLE [Interacting]
     Active Substance: FLUCONAZOLE
     Indication: Micturition disorder
  5. PAROXETINE [Suspect]
     Active Substance: PAROXETINE
     Indication: Depression
     Dosage: 40 MILLIGRAM, DAILY, (INITIALLY AT 20 MG/D, SUBSEQUENTLY AT 40 MG/D )
     Route: 065
  6. PAROXETINE [Suspect]
     Active Substance: PAROXETINE
     Dosage: 20 UNK
     Route: 065
  7. QUETIAPINE [Interacting]
     Active Substance: QUETIAPINE
     Indication: Depression
     Dosage: UNK, ONCE A DAY (INCREASED THE DOSE BY 50 MG (TAKEN BEFORE BEDTIME))
     Route: 065
  8. QUETIAPINE [Interacting]
     Active Substance: QUETIAPINE
     Dosage: 150 MILLIGRAM, DAILY
     Route: 065
  9. QUETIAPINE [Interacting]
     Active Substance: QUETIAPINE
     Dosage: 200 MILLIGRAM, ONCE A DAY
     Route: 065
  10. BIOTIN [Suspect]
     Active Substance: BIOTIN
     Indication: Alopecia
     Dosage: 20 MILLIGRAM, DAILY
     Route: 065
  11. CRANBERRY [Suspect]
     Active Substance: CRANBERRY
     Indication: Micturition disorder
     Dosage: UNK
     Route: 065
  12. CRANBERRY [Suspect]
     Active Substance: CRANBERRY
     Indication: Vaginal discharge

REACTIONS (8)
  - Labelled drug-drug interaction issue [Recovering/Resolving]
  - Hypothyroidism [Recovering/Resolving]
  - Food interaction [Recovering/Resolving]
  - Thrombocytopenia [Recovering/Resolving]
  - Leukopenia [Recovering/Resolving]
  - Product use in unapproved indication [Unknown]
  - Epistaxis [Unknown]
  - Somnolence [Unknown]
